FAERS Safety Report 8258308-8 (Version None)
Quarter: 2012Q2

REPORT INFORMATION
  Report Type: 
  Country: None (occurrence: None)
  Receive Date: 20120404
  Receipt Date: 20120326
  Transmission Date: 20120825
  Serious: Yes (Other)
  Sender: FDA-Public Use
  Company Number: US-JNJFOC-20120400009

PATIENT

DRUGS (8)
  1. BEVACIZUMAB [Suspect]
     Indication: HEPATIC NEOPLASM MALIGNANT
     Route: 042
  2. CIPROFLOXACIN [Concomitant]
     Dosage: AFTER TACE
     Route: 065
  3. MITOMYCIN [Suspect]
     Indication: HEPATIC NEOPLASM MALIGNANT
     Route: 065
  4. CISPLATIN [Suspect]
     Indication: HEPATIC NEOPLASM MALIGNANT
     Route: 065
  5. METRONIDAZOLE [Concomitant]
     Dosage: AFTER TACE
     Route: 065
  6. DOXORUBICIN HCL [Suspect]
     Indication: HEPATIC NEOPLASM MALIGNANT
     Route: 042
  7. ANTIEMETICS [Concomitant]
     Route: 065
  8. PAIN MEDICATION NOS [Concomitant]
     Route: 065

REACTIONS (18)
  - HYPERBILIRUBINAEMIA [None]
  - PROTEINURIA [None]
  - CONSTIPATION [None]
  - HYPERTENSION [None]
  - NAUSEA [None]
  - VOMITING [None]
  - DECREASED APPETITE [None]
  - FATIGUE [None]
  - HYPOALBUMINAEMIA [None]
  - PAIN [None]
  - PYREXIA [None]
  - BLOOD ELECTROLYTES ABNORMAL [None]
  - TRANSAMINASES INCREASED [None]
  - INCORRECT ROUTE OF DRUG ADMINISTRATION [None]
  - BLOOD ALKALINE PHOSPHATASE INCREASED [None]
  - ANAEMIA [None]
  - HAEMORRHAGE [None]
  - THROMBOCYTOPENIA [None]
